FAERS Safety Report 8539755 (Version 2)
Quarter: 2012Q4

REPORT INFORMATION
  Report Type: 
  Country: US (occurrence: US)
  Receive Date: 20120502
  Receipt Date: 20120830
  Transmission Date: 20130627
  Serious: Yes (Hospitalization)
  Sender: FDA-Public Use
  Company Number: US-BAYER-2012-041913

PATIENT
  Age: 35 Year
  Sex: Female
  Weight: 91 kg

DRUGS (10)
  1. YAZ [Suspect]
     Indication: PREMENSTRUAL SYNDROME
     Dosage: UNK
     Dates: start: 200909, end: 201006
  2. YAZ [Suspect]
     Indication: MENORRHAGIA
  3. YAZ [Suspect]
     Indication: PREMENSTRUAL SYNDROME
  4. BENTYL [Concomitant]
     Dosage: 20 mg, UNK
  5. AMBIEN [Concomitant]
     Dosage: UNK
  6. DICYCLOMINE [Concomitant]
     Dosage: UNK
  7. HYDROCODONE W/APAP [Concomitant]
     Dosage: UNK
  8. SERTRALINE HYDROCHLORIDE [Concomitant]
     Dosage: 100 mg, UNK
  9. VICODIN [Concomitant]
     Dosage: 500 mg -4 mg, 1 tablet Q4HR
     Dates: start: 20100602
  10. ZOLOFT [Concomitant]
     Dosage: 100md, daily
     Dates: start: 20100602

REACTIONS (10)
  - Cholelithiasis [None]
  - Pain [None]
  - Biliary colic [None]
  - Cholecystitis chronic [None]
  - Injury [None]
  - Abdominal pain [None]
  - Abdominal pain upper [None]
  - Abdominal distension [None]
  - Nausea [None]
  - Vomiting [None]
